FAERS Safety Report 18904201 (Version 1)
Quarter: 2021Q1

REPORT INFORMATION
  Report Type: Report from Study
  Country: None (occurrence: CA)
  Receive Date: 20210217
  Receipt Date: 20210217
  Transmission Date: 20210420
  Serious: Yes (Other)
  Sender: FDA-Public Use
  Company Number: CA-ABBVIE-20K-028-3400793-00

PATIENT
  Sex: Female

DRUGS (1)
  1. HUMIRA [Suspect]
     Active Substance: ADALIMUMAB
     Indication: UVEITIS
     Route: 058
     Dates: start: 20180531

REACTIONS (6)
  - Therapeutic response shortened [Not Recovered/Not Resolved]
  - Arthritis [Unknown]
  - Phlebitis [Unknown]
  - Post procedural complication [Unknown]
  - Injection site pain [Not Recovered/Not Resolved]
  - Osteoarthritis [Recovered/Resolved]

NARRATIVE: CASE EVENT DATE: 2021
